FAERS Safety Report 6711193-5 (Version None)
Quarter: 2010Q2

REPORT INFORMATION
  Report Type: 
  Country: None (occurrence: None)
  Receive Date: 20100429
  Receipt Date: 20090609
  Transmission Date: 20101027
  Serious: Yes (Other)
  Sender: FDA-Public Use
  Company Number: 2009PV038757

PATIENT
  Age: 19 Year
  Sex: Female
  Weight: 68.9 kg

DRUGS (5)
  1. SYMLIN [Suspect]
     Indication: TYPE 1 DIABETES MELLITUS
     Dosage: 5 MCG;QH;PUMP
     Dates: start: 20071130, end: 20071201
  2. HUMALOG (CON.) [Concomitant]
  3. ZOCOR (CON.) [Concomitant]
  4. ALLEGRA (CON.) [Concomitant]
  5. SINGULAIR (CON.) [Concomitant]

REACTIONS (1)
  - HYPOGLYCAEMIA [None]
